FAERS Safety Report 4316956-1 (Version None)
Quarter: 2004Q1

REPORT INFORMATION
  Report Type: 
  Country: None (occurrence: None)
  Receive Date: 20040312
  Receipt Date: 20040225
  Transmission Date: 20041129
  Serious: Yes (Other)
  Sender: FDA-Public Use
  Company Number: 04-064-0768

PATIENT
  Sex: Female
  Weight: 80.2867 kg

DRUGS (7)
  1. DAUNORUBICIN INJ, 20MG/4ML; BEN VENUE LABS [Suspect]
     Indication: LYMPHOMA
     Dosage: 85 MG IVP
     Route: 042
     Dates: start: 20040219, end: 20040221
  2. BACTRIM [Concomitant]
  3. MORPHINE [Concomitant]
  4. CYTOXAN [Concomitant]
  5. VINCRISTINE [Concomitant]
  6. DECADRON [Concomitant]
  7. PREDNISONE [Concomitant]

REACTIONS (4)
  - PRURITUS [None]
  - RASH [None]
  - URTICARIA [None]
  - WHEEZING [None]
